FAERS Safety Report 4358592-7 (Version None)
Quarter: 2004Q2

REPORT INFORMATION
  Report Type: 
  Country: None (occurrence: None)
  Receive Date: 20040514
  Receipt Date: 20040428
  Transmission Date: 20050107
  Serious: Yes (Hospitalization, Disabling)
  Sender: FDA-Public Use
  Company Number: BRO-007234

PATIENT
  Age: 60 Year
  Sex: Female

DRUGS (3)
  1. IOPAMIDOL [Suspect]
     Dosage: 300 ML IV
     Route: 042
  2. AZATHIOPRINE [Concomitant]
  3. RAZOXANE [Concomitant]

REACTIONS (2)
  - CONDITION AGGRAVATED [None]
  - PSORIASIS [None]
